FAERS Safety Report 17070193 (Version 1)
Quarter: 2019Q4

REPORT INFORMATION
  Report Type: Spontaneous
  Country: GB (occurrence: GB)
  Receive Date: 20191125
  Receipt Date: 20191125
  Transmission Date: 20200122
  Serious: Yes (Other)
  Sender: FDA-Public Use
  Company Number: GB-TEVA-2019-GB-1140673

PATIENT
  Age: 40 Year
  Sex: Female
  Weight: 80 kg

DRUGS (1)
  1. ACETIC ACID. [Suspect]
     Active Substance: ACETIC ACID
     Indication: OTITIS EXTERNA
     Dosage: LEAVING 2-3 HOURS APART FOR EACH SPRAY AT LEAST. 2 DOSAGE FORMS
     Dates: start: 20191017, end: 20191018

REACTIONS (3)
  - Ear discomfort [Recovered/Resolved]
  - Ear pain [Recovered/Resolved]
  - Infection [Unknown]

NARRATIVE: CASE EVENT DATE: 20191017
